FAERS Safety Report 7223185-0 (Version None)
Quarter: 2011Q1

REPORT INFORMATION
  Report Type: 
  Country: None (occurrence: None)
  Receive Date: 20110112
  Receipt Date: 20100222
  Transmission Date: 20110831
  Serious: No
  Sender: FDA-Public Use
  Company Number: US-ALLERGAN-1002281US

PATIENT
  Age: 46 Year
  Sex: Female

DRUGS (2)
  1. RESTASIS [Suspect]
     Dosage: 1 GTT, QD
  2. RESTASIS [Suspect]
     Indication: DRY EYE
     Dosage: 1 GTT, QD

REACTIONS (4)
  - EYE IRRITATION [None]
  - NAUSEA [None]
  - VISION BLURRED [None]
  - DIZZINESS [None]
